FAERS Safety Report 9090439 (Version 1)
Quarter: 2013Q1

REPORT INFORMATION
  Report Type: Spontaneous
  Country: JP (occurrence: JP)
  Receive Date: 20130201
  Receipt Date: 20130201
  Transmission Date: 20140127
  Serious: Yes (Hospitalization)
  Sender: FDA-Public Use
  Company Number: JP-ABBOTT-13P-087-1038145-00

PATIENT
  Sex: 0

DRUGS (3)
  1. CLARITHROMYCIN [Suspect]
     Indication: PRODUCT USED FOR UNKNOWN INDICATION
     Dosage: 0.5 CARD (0.5 CARD, 1 IN 1 D)
     Route: 048
  2. LANSAP [Suspect]
     Indication: PRODUCT USED FOR UNKNOWN INDICATION
     Dosage: 0.5 CARD (0.5 CARD, 1 IN 1 D)
     Route: 048
  3. AMOXICILLIN [Suspect]
     Indication: PRODUCT USED FOR UNKNOWN INDICATION
     Dosage: 0.5 CARD (0.5 CARD, 1 IN 1 D)
     Route: 048

REACTIONS (1)
  - Anaphylactic reaction [Unknown]
